FAERS Safety Report 8799918 (Version 1)
Quarter: 2012Q4

REPORT INFORMATION
  Report Type: Spontaneous
  Country: US (occurrence: None)
  Receive Date: 20120917
  Receipt Date: 20120917
  Transmission Date: 20130627
  Serious: Yes (Other)
  Sender: FDA-Public Use
  Company Number: 2012-01355

PATIENT
  Age: 42 Year
  Sex: Female
  Weight: 99.5 kg

DRUGS (2)
  1. LOSARTAN [Suspect]
     Indication: HYPERTENSION
     Route: 048
     Dates: start: 20120627, end: 20120824
  2. RAMIPRIL [Concomitant]

REACTIONS (4)
  - Crying [None]
  - Feeling abnormal [None]
  - Feelings of worthlessness [None]
  - Suicidal ideation [None]
